FAERS Safety Report 7212406-6 (Version None)
Quarter: 2011Q1

REPORT INFORMATION
  Report Type: 
  Country: None (occurrence: None)
  Receive Date: 20110106
  Receipt Date: 20101228
  Transmission Date: 20110831
  Serious: Yes (Other)
  Sender: FDA-Public Use
  Company Number: FR-PFIZER INC-2010179956

PATIENT
  Age: 72 Year
  Sex: Female
  Weight: 69 kg

DRUGS (13)
  1. OROCAL VITAMIN D [Concomitant]
     Dosage: 1 DF, 2X/DAY
  2. SOLU-MEDROL [Suspect]
     Dosage: 100 ML, 1X/DAY
     Route: 042
     Dates: start: 20091008
  3. NOROXIN [Concomitant]
     Dosage: 400 MG ON MONDAY, WEDNESDAY AND FRIDAY
  4. METHOTREXATE [Concomitant]
     Indication: RHEUMATOID ARTHRITIS
     Dosage: 6 DF, WEEKLY
     Dates: start: 19940101
  5. EFFERALGAN CODEINE [Concomitant]
     Dosage: 1 DF, 4X/DAY
  6. CORTANCYL [Concomitant]
     Dosage: 5 MG, 1X/DAY
  7. DIFFU K [Concomitant]
     Dosage: UNK
  8. PROTELOS [Concomitant]
     Dosage: 1 DF, 1X/DAY
  9. MABTHERA [Suspect]
     Indication: RHEUMATOID ARTHRITIS
     Dosage: 1000 MG, 1X/DAY
     Route: 042
     Dates: start: 20091008, end: 20091008
  10. ENBREL [Concomitant]
     Indication: RHEUMATOID ARTHRITIS
     Dosage: UNK
     Dates: start: 20031201, end: 20090820
  11. BI-PROFENID [Concomitant]
     Dosage: 150 MG, 2X/DAY
  12. INIPOMP [Concomitant]
     Dosage: 20 MG, 1X/DAY
  13. SPECIAFOLDINE [Concomitant]
     Dosage: 2 DF, WEEKLY

REACTIONS (1)
  - ARRHYTHMIA [None]
